FAERS Safety Report 8483242-8 (Version None)
Quarter: 2012Q3

REPORT INFORMATION
  Report Type: 
  Country: None (occurrence: None)
  Receive Date: 20120702
  Receipt Date: 20120622
  Transmission Date: 20120928
  Serious: Yes (Other)
  Sender: FDA-Public Use
  Company Number: PHFR2012GB003649

PATIENT
  Age: 71 Year
  Sex: Male

DRUGS (7)
  1. TIMOLOL MALEATE [Suspect]
     Indication: OCULAR HYPERTENSION
     Dosage: 0.5 %, UNK
     Route: 047
  2. PRED FORTE [Suspect]
     Indication: IRIDOCYCLITIS
     Dosage: UNK
     Route: 047
     Dates: start: 20110401
  3. TIMOLOL MALEATE [Suspect]
     Dosage: 0.5 %, BID
     Route: 047
  4. TRAVOPROST AND TIMOLOL [Suspect]
     Indication: OCULAR HYPERTENSION
     Dosage: TRAVOPROST 40 UG/L AND TIMOLOL 5 MG/L
     Route: 047
  5. AZARGA [Suspect]
     Dosage: BRINZOLAMIDE 1% + TIMOLOL 0.5%
     Route: 047
  6. MITOMYCIN [Concomitant]
     Dosage: 0.4 MG/ML, UNK
  7. PREDNISOLONE [Concomitant]
     Route: 048

REACTIONS (9)
  - VISION BLURRED [None]
  - NARROW ANTERIOR CHAMBER ANGLE [None]
  - DIPLOPIA [None]
  - IRIS ADHESIONS [None]
  - OPTIC NERVE CUPPING [None]
  - CHORIORETINAL DISORDER [None]
  - UVEITIS [None]
  - HALO VISION [None]
  - INTRAOCULAR PRESSURE INCREASED [None]
